FAERS Safety Report 8442666-5 (Version None)
Quarter: 2012Q2

REPORT INFORMATION
  Report Type: 
  Country: None (occurrence: None)
  Receive Date: 20120615
  Receipt Date: 20111130
  Transmission Date: 20120825
  Serious: No
  Sender: FDA-Public Use
  Company Number: US-NOVEN-11US003710

PATIENT
  Age: 11 Year
  Sex: Female
  Weight: 31.746 kg

DRUGS (1)
  1. DAYTRANA [Suspect]
     Indication: ATTENTION DEFICIT/HYPERACTIVITY DISORDER
     Dosage: 15 MG, UNK
     Route: 062
     Dates: start: 20111127

REACTIONS (2)
  - APPLICATION SITE EXFOLIATION [None]
  - APPLICATION SITE ERYTHEMA [None]
